FAERS Safety Report 10235583 (Version 2)
Quarter: 2014Q2

REPORT INFORMATION
  Report Type: Report from Study
  Country: US (occurrence: US)
  Receive Date: 20140613
  Receipt Date: 20140613
  Transmission Date: 20141212
  Serious: Yes (Disabling)
  Sender: FDA-Public Use
  Company Number: US-JNJFOC-20140407777

PATIENT
  Age: 37 Year
  Sex: Male
  Weight: 83.01 kg

DRUGS (3)
  1. HALDOL DECANOATE [Suspect]
     Indication: MANIA
     Route: 065
     Dates: start: 20140310
  2. INVEGA SUSTENNA [Suspect]
     Indication: MANIA
     Route: 030
     Dates: start: 20140318
  3. LITHOBID [Concomitant]
     Indication: BIPOLAR DISORDER
     Route: 065

REACTIONS (2)
  - Akathisia [Recovering/Resolving]
  - Adverse drug reaction [Not Recovered/Not Resolved]
